FAERS Safety Report 6248044-1 (Version None)
Quarter: 2009Q2

REPORT INFORMATION
  Report Type: 
  Country: None (occurrence: None)
  Receive Date: 20090626
  Receipt Date: 20090612
  Transmission Date: 20091009
  Serious: Yes (Hospitalization)
  Sender: FDA-Public Use
  Company Number: FR-GENENTECH-240513

PATIENT
  Sex: Male
  Weight: 48 kg

DRUGS (4)
  1. BEVACIZUMAB [Suspect]
     Indication: NON-SMALL CELL LUNG CANCER
     Dosage: 900 MG, Q3W
     Route: 042
     Dates: start: 20070402
  2. NAVELBINE [Suspect]
     Indication: NON-SMALL CELL LUNG CANCER
     Dosage: 51 MG, UNK
     Route: 042
     Dates: start: 20070410
  3. CISPLATIN [Suspect]
     Indication: NON-SMALL CELL LUNG CANCER
     Dosage: 136 MG, Q3W
     Route: 042
     Dates: start: 20070402
  4. RADIOTHERAPY [Concomitant]
     Indication: DRUG USE FOR UNKNOWN INDICATION

REACTIONS (2)
  - ALPHA HAEMOLYTIC STREPTOCOCCAL INFECTION [None]
  - FEBRILE BONE MARROW APLASIA [None]
